FAERS Safety Report 7451512-8 (Version None)
Quarter: 2011Q2

REPORT INFORMATION
  Report Type: 
  Country: None (occurrence: None)
  Receive Date: 20110425
  Receipt Date: 20110420
  Transmission Date: 20111010
  Serious: Yes (Death, Hospitalization)
  Sender: FDA-Public Use
  Company Number: 2011SP014673

PATIENT
  Age: 60 Year
  Sex: Male

DRUGS (10)
  1. TEMODAL [Suspect]
     Indication: GLIOBLASTOMA
     Dosage: 140 MG; QD; 100 MG; QD;
     Dates: start: 20110301, end: 20110304
  2. TEMODAL [Suspect]
     Indication: GLIOBLASTOMA
     Dosage: 140 MG; QD; 100 MG; QD;
     Dates: start: 20110201, end: 20110228
  3. DEXAMETHASONE [Concomitant]
  4. SERETIDE [Concomitant]
  5. PANTOLOC [Concomitant]
  6. FRAGMIN [Concomitant]
  7. THEOSPIREX [Concomitant]
  8. DEXAMETHASONE [Concomitant]
  9. ACEMIN [Concomitant]
  10. COMBIVENT [Concomitant]

REACTIONS (5)
  - LEUKOPENIA [None]
  - ANAEMIA [None]
  - INFLAMMATION [None]
  - THROMBOCYTOPENIA [None]
  - SEPSIS [None]
